FAERS Safety Report 5024821-X (Version None)
Quarter: 2006Q2

REPORT INFORMATION
  Report Type: 
  Country: None (occurrence: None)
  Receive Date: 20060607
  Receipt Date: 20060529
  Transmission Date: 20061013
  Serious: Yes (Hospitalization, Other)
  Sender: FDA-Public Use
  Company Number: HQWYE516124MAY06

PATIENT
  Age: 50 Year
  Sex: Male

DRUGS (3)
  1. RAPAMUNE [Suspect]
     Indication: PROPHYLAXIS AGAINST TRANSPLANT REJECTION
     Dosage: 5 MG 1X PER 1 DAY ORAL
     Route: 048
     Dates: start: 20060321
  2. MEPREDNISONE                (MEPREDNISONE) [Concomitant]
  3. MYCOPHENOLATE MOFETIL [Concomitant]

REACTIONS (6)
  - BLASTOMYCOSIS [None]
  - BLOOD CREATINE INCREASED [None]
  - CULTURE STOOL POSITIVE [None]
  - HERNIA [None]
  - PAIN [None]
  - SMALL INTESTINAL OBSTRUCTION [None]
